FAERS Safety Report 9939796 (Version 1)
Quarter: 2014Q1

REPORT INFORMATION
  Report Type: Report from Study
  Country: US (occurrence: US)
  Receive Date: 20140303
  Receipt Date: 20140303
  Transmission Date: 20141002
  Serious: No
  Sender: FDA-Public Use
  Company Number: US-ABBVIE-13P-163-1034516-00

PATIENT
  Age: 45 Year
  Sex: Male

DRUGS (6)
  1. HUMIRA [Suspect]
     Indication: RHEUMATOID ARTHRITIS
     Dates: start: 201211
  2. METHOTREXAAT [Concomitant]
     Indication: PRODUCT USED FOR UNKNOWN INDICATION
     Dosage: 6 PILLS WEEKLY
  3. PLAQUENIL [Concomitant]
     Indication: PRODUCT USED FOR UNKNOWN INDICATION
     Dosage: ONE PILL AM AND PM
  4. FOLIC ACID [Concomitant]
     Indication: PRODUCT USED FOR UNKNOWN INDICATION
     Dosage: ONE DAILY WHILE ON METHOTREXATE
  5. ENTOCORT [Concomitant]
     Indication: COLITIS
     Dosage: 4 PILLS DAILY
  6. OMEPRAZOLE [Concomitant]
     Indication: GASTROOESOPHAGEAL REFLUX DISEASE
     Dosage: 1 DAILY

REACTIONS (2)
  - Gingival bleeding [Recovering/Resolving]
  - Bleeding time prolonged [Recovering/Resolving]
